FAERS Safety Report 7743898-1 (Version None)
Quarter: 2011Q3

REPORT INFORMATION
  Report Type: 
  Country: None (occurrence: None)
  Receive Date: 20110912
  Receipt Date: 20110905
  Transmission Date: 20111222
  Serious: Yes (Death, Disabling)
  Sender: FDA-Public Use
  Company Number: BR-GLAXOSMITHKLINE-A0943917A

PATIENT
  Sex: Female
  Weight: 54.5 kg

DRUGS (20)
  1. ANTI-THYMOCYTE GLOBULIN NOS [Concomitant]
     Indication: CORD BLOOD TRANSPLANT THERAPY
     Dosage: 110MGD PER DAY
     Route: 042
     Dates: start: 20110213, end: 20110216
  2. NORETHINDRONE [Concomitant]
     Dosage: 10MGD PER DAY
     Route: 042
     Dates: start: 20110213
  3. MESNA [Concomitant]
     Route: 042
     Dates: start: 20110214, end: 20110215
  4. ONDANSETRON [Concomitant]
     Dosage: 8MG SIX TIMES PER DAY
     Route: 042
     Dates: start: 20110214
  5. MYLERAN [Suspect]
     Indication: CORD BLOOD TRANSPLANT THERAPY
     Dosage: 200MGD PER DAY
     Route: 065
     Dates: start: 20110210, end: 20110213
  6. FLUCONAZOLE [Concomitant]
     Dosage: 200MG TWICE PER DAY
     Route: 042
     Dates: start: 20110215
  7. PROMETHAZINE [Concomitant]
     Dosage: 25MG TWICE PER DAY
     Route: 048
     Dates: start: 20110214, end: 20110216
  8. OMEPRAZOLE [Concomitant]
     Dosage: 40MG PER DAY
     Route: 042
  9. FUROSEMIDE [Concomitant]
     Dosage: 10MG PER DAY
     Route: 042
  10. CYCLOPHOSPHAMIDE [Concomitant]
     Indication: CORD BLOOD TRANSPLANT THERAPY
     Dosage: 3270MGD PER DAY
     Route: 042
     Dates: start: 20110214, end: 20110215
  11. ALLOPURINOL [Concomitant]
     Dosage: 100MG UNKNOWN
     Route: 048
  12. METILPREDNISOLONE [Concomitant]
     Dosage: 110MGD PER DAY
     Route: 042
     Dates: start: 20110213, end: 20110216
  13. ONDANSETRON [Concomitant]
     Dosage: 8MG FOUR TIMES PER DAY
     Route: 042
     Dates: end: 20110213
  14. DIPYRONE TAB [Concomitant]
     Route: 042
     Dates: start: 20110213, end: 20110216
  15. CEFEPIME [Concomitant]
     Dosage: 2000MG TWICE PER DAY
     Route: 042
     Dates: start: 20110213
  16. PROMETHAZINE [Concomitant]
     Dosage: 25MGD PER DAY
     Route: 048
     Dates: start: 20110213, end: 20110213
  17. ACYCLOVIR [Concomitant]
     Dosage: 775MG THREE TIMES PER DAY
     Route: 042
     Dates: start: 20110215
  18. ALBENDAZOLE [Concomitant]
     Dosage: 400MGD PER DAY
     Route: 048
     Dates: start: 20110209, end: 20110211
  19. IMMUNE GLOBULIN INTRAVENOUS (HUMAN) [Concomitant]
     Dosage: 25MG WEEKLY
     Route: 042
     Dates: start: 20110210, end: 20110210
  20. URSODIOL [Concomitant]
     Dosage: 300MG TWICE PER DAY
     Route: 048

REACTIONS (5)
  - RESPIRATORY FAILURE [None]
  - PNEUMONIA [None]
  - ODYNOPHAGIA [None]
  - CYSTITIS HAEMORRHAGIC [None]
  - MUCOSAL INFLAMMATION [None]
